FAERS Safety Report 11944606 (Version 1)
Quarter: 2016Q1

REPORT INFORMATION
  Report Type: Spontaneous
  Country: US (occurrence: US)
  Receive Date: 20160125
  Receipt Date: 20160125
  Transmission Date: 20160526
  Serious: No
  Sender: FDA-Public Use
  Company Number: US-UNICHEM LABORATORIES LIMITED-UCM201509-000775

PATIENT
  Sex: Female

DRUGS (2)
  1. MELOXICAM. [Suspect]
     Active Substance: MELOXICAM
     Indication: INFLAMMATION
     Route: 048
  2. MELOXICAM. [Suspect]
     Active Substance: MELOXICAM
     Indication: PAIN

REACTIONS (1)
  - Drug ineffective [Unknown]
